FAERS Safety Report 7263023-3 (Version None)
Quarter: 2011Q1

REPORT INFORMATION
  Report Type: 
  Country: None (occurrence: None)
  Receive Date: 20110130
  Receipt Date: 20100923
  Transmission Date: 20110831
  Serious: No
  Sender: FDA-Public Use
  Company Number: US-ABBOTT-10P-163-0672756-00

PATIENT
  Age: 63 Year
  Sex: Female

DRUGS (7)
  1. AMITRIPTYLINE HCL [Concomitant]
     Indication: PRODUCT USED FOR UNKNOWN INDICATION
     Dosage: 2 AT NIGHT FOR 7 YEARS
     Route: 048
  2. MAXZIDE [Concomitant]
     Indication: ABDOMINAL DISTENSION
     Dosage: 75/50 TABLET
     Route: 048
  3. ESTROGENIC SUBSTANCE [Concomitant]
     Indication: PRODUCT USED FOR UNKNOWN INDICATION
  4. HUMIRA [Suspect]
     Indication: FIBROMYALGIA
     Dates: start: 20090101
  5. HUMIRA [Suspect]
     Indication: GRANULOMA SKIN
  6. MULTIVITAMIN [Concomitant]
     Indication: PRODUCT USED FOR UNKNOWN INDICATION
     Dosage: DAILY
  7. AMBIEN [Concomitant]
     Indication: INSOMNIA
     Dosage: 1/2 AT NIGHT
     Route: 048

REACTIONS (1)
  - INJECTION SITE PAIN [None]
